FAERS Safety Report 25956473 (Version 3)
Quarter: 2025Q4

REPORT INFORMATION
  Report Type: Report from Study
  Country: CA (occurrence: CA)
  Receive Date: 20251024
  Receipt Date: 20251230
  Transmission Date: 20260119
  Serious: Yes (Hospitalization, Other)
  Sender: ABBVIE
  Company Number: CA-ABBVIE-6512952

PATIENT
  Age: 82 Year
  Sex: Female

DRUGS (2)
  1. RINVOQ [Suspect]
     Active Substance: UPADACITINIB
     Indication: Giant cell arteritis
     Route: 048
     Dates: start: 20250804, end: 202511
  2. PREDNISONE [Suspect]
     Active Substance: PREDNISONE
     Indication: Product used for unknown indication
     Dosage: DECREASING DOSES
     Route: 065

REACTIONS (2)
  - Bacterial sepsis [Recovered/Resolved with Sequelae]
  - Complicated diverticulitis [Unknown]

NARRATIVE: CASE EVENT DATE: 20251015
